FAERS Safety Report 25152906 (Version 2)
Quarter: 2025Q2

REPORT INFORMATION
  Report Type: Spontaneous
  Country: FR (occurrence: FR)
  Receive Date: 20250403
  Receipt Date: 20250408
  Transmission Date: 20250716
  Serious: Yes (Life-Threatening, Other)
  Sender: SANDOZ
  Company Number: None

PATIENT
  Age: 45 Year
  Sex: Female
  Weight: 64 kg

DRUGS (5)
  1. ACUPAN [Suspect]
     Active Substance: NEFOPAM HYDROCHLORIDE
     Indication: Pain prophylaxis
     Route: 042
     Dates: start: 20250312, end: 20250312
  2. MIDAZOLAM HYDROCHLORIDE [Suspect]
     Active Substance: MIDAZOLAM HYDROCHLORIDE
     Indication: Induction of anaesthesia
     Route: 042
     Dates: start: 20250312, end: 20250312
  3. ACETAMINOPHEN [Suspect]
     Active Substance: ACETAMINOPHEN
     Indication: Pain prophylaxis
     Route: 042
     Dates: start: 20250312, end: 20250312
  4. SUFENTA [Suspect]
     Active Substance: SUFENTANIL CITRATE
     Indication: Induction of anaesthesia
     Route: 042
     Dates: start: 20250312, end: 20250312
  5. TRACRIUM [Suspect]
     Active Substance: ATRACURIUM BESYLATE
     Indication: Neuromuscular blocking therapy
     Route: 042
     Dates: start: 20250312, end: 20250312

REACTIONS (1)
  - Anaphylactic reaction [Recovered/Resolved]

NARRATIVE: CASE EVENT DATE: 20250312
